FAERS Safety Report 5831879-4 (Version None)
Quarter: 2008Q3

REPORT INFORMATION
  Report Type: 
  Country: None (occurrence: None)
  Receive Date: 20080804
  Receipt Date: 20080728
  Transmission Date: 20090109
  Serious: Yes (Hospitalization, Other)
  Sender: FDA-Public Use
  Company Number: US-AMGEN-US294063

PATIENT
  Sex: Male
  Weight: 84.9 kg

DRUGS (7)
  1. PROCRIT [Suspect]
     Indication: RENAL FAILURE CHRONIC
     Route: 058
     Dates: start: 20061101, end: 20080401
  2. METOPROLOL [Concomitant]
     Route: 065
     Dates: start: 20030101
  3. WARFARIN SODIUM [Concomitant]
     Route: 065
     Dates: start: 20030101
  4. CALCITRIOL [Concomitant]
     Route: 065
     Dates: start: 20080101
  5. FUROSEMIDE [Concomitant]
     Route: 065
     Dates: start: 20080101
  6. LANTUS [Concomitant]
     Route: 065
     Dates: start: 20080101
  7. PRAVASTATIN [Concomitant]
     Route: 065
     Dates: start: 20080101

REACTIONS (2)
  - CARDIAC VALVE DISEASE [None]
  - THERAPEUTIC RESPONSE DECREASED [None]
